FAERS Safety Report 19199274 (Version 1)
Quarter: 2021Q2

REPORT INFORMATION
  Report Type: Spontaneous
  Country: US (occurrence: US)
  Receive Date: 20210429
  Receipt Date: 20210429
  Transmission Date: 20210717
  Serious: No
  Sender: FDA-Public Use
  Company Number: None

PATIENT
  Age: 58 Year
  Sex: Female
  Weight: 71.1 kg

DRUGS (6)
  1. ATORVASTATIN 20 MG [Concomitant]
     Active Substance: ATORVASTATIN
     Dates: start: 20160527
  2. ASPIRIN 81 MG [Concomitant]
     Active Substance: ASPIRIN
     Dates: start: 20160527
  3. INVOKANA [Suspect]
     Active Substance: CANAGLIFLOZIN
     Indication: TYPE 2 DIABETES MELLITUS
     Route: 048
     Dates: start: 20200207, end: 20200323
  4. METFORMIN 1,000 MG [Concomitant]
     Dates: start: 20190821
  5. GLIPIZIDE ER 10 MG [Concomitant]
     Dates: start: 20160527
  6. JANUVIA [Concomitant]
     Active Substance: SITAGLIPTIN PHOSPHATE
     Dates: start: 20210324

REACTIONS (1)
  - Vulvovaginal pruritus [None]

NARRATIVE: CASE EVENT DATE: 20200323
